FAERS Safety Report 8780216 (Version 1)
Quarter: 2012Q4

REPORT INFORMATION
  Report Type: Spontaneous
  Country: US (occurrence: None)
  Receive Date: 20120904
  Receipt Date: 20120904
  Transmission Date: 20130627
  Serious: Yes (Life-Threatening, Hospitalization, Other)
  Sender: FDA-Public Use
  Company Number: None

PATIENT
  Age: 17 Year
  Sex: Female
  Weight: 88.45 kg

DRUGS (2)
  1. NORGESTIMATE/ETH. ESTRADIOL [Suspect]
     Dates: start: 20120619, end: 20120813
  2. NORGESTIMATE/ETH. ESTRADIOL [Suspect]
     Dates: start: 20120619, end: 20120813

REACTIONS (1)
  - Deep vein thrombosis [None]
